FAERS Safety Report 19618163 (Version 1)
Quarter: 2021Q3

REPORT INFORMATION
  Report Type: Spontaneous
  Country: US (occurrence: US)
  Receive Date: 20210727
  Receipt Date: 20210727
  Transmission Date: 20211014
  Serious: No
  Sender: FDA-Public Use
  Company Number: US-ROCHE-2730655

PATIENT
  Sex: Male
  Weight: 99.88 kg

DRUGS (8)
  1. VECTIBIX [Concomitant]
     Active Substance: PANITUMUMAB
     Indication: COLON CANCER
     Route: 042
     Dates: start: 20200826
  2. METFORMIN [Concomitant]
     Active Substance: METFORMIN HYDROCHLORIDE
     Indication: DIABETES MELLITUS
     Dosage: 1000MG IN MORNING, 500MG IN EVENING
     Route: 048
  3. FUROSEMIDE. [Concomitant]
     Active Substance: FUROSEMIDE
     Route: 048
  4. XELODA [Suspect]
     Active Substance: CAPECITABINE
     Indication: COLON CANCER
     Dosage: 1000 MG TWICE A DAY FOR A WEEK AND THEN OFF A WEEK
     Route: 048
     Dates: start: 20200916
  5. FLOMAX [Concomitant]
     Active Substance: TAMSULOSIN HYDROCHLORIDE
     Route: 048
  6. ATORVASTATIN [Concomitant]
     Active Substance: ATORVASTATIN
     Route: 048
  7. PRESERVISION [Concomitant]
     Active Substance: MINERALS\VITAMINS
     Route: 048
  8. VITAMIN D [ERGOCALCIFEROL] [Concomitant]
     Active Substance: ERGOCALCIFEROL
     Route: 048

REACTIONS (6)
  - Blood magnesium decreased [Not Recovered/Not Resolved]
  - Skin ulcer [Not Recovered/Not Resolved]
  - Blister [Unknown]
  - Dry skin [Unknown]
  - Vision blurred [Not Recovered/Not Resolved]
  - Pruritus [Unknown]
